FAERS Safety Report 5504218-6 (Version None)
Quarter: 2007Q4

REPORT INFORMATION
  Report Type: 
  Country: None (occurrence: None)
  Receive Date: 20071101
  Receipt Date: 20071024
  Transmission Date: 20080405
  Serious: Yes (Death, Hospitalization)
  Sender: FDA-Public Use
  Company Number: US-ELI_LILLY_AND_COMPANY-US200710006000

PATIENT
  Age: 51 Year
  Sex: Male

DRUGS (1)
  1. FORTEO [Suspect]
     Dates: start: 20061201

REACTIONS (4)
  - INFECTION [None]
  - MALAISE [None]
  - MENINGITIS STAPHYLOCOCCAL [None]
  - THERAPEUTIC PROCEDURE [None]
